FAERS Safety Report 23233113 (Version 2)
Quarter: 2023Q4

REPORT INFORMATION
  Report Type: Other
  Country: CL (occurrence: None)
  Receive Date: 20231128
  Receipt Date: 20231221
  Transmission Date: 20240110
  Serious: Yes (Death, Hospitalization, Other)
  Sender: FDA-Public Use
  Company Number: CL-ROCHE-3464414

PATIENT
  Age: 46 Year
  Sex: Female

DRUGS (1)
  1. OCRELIZUMAB [Suspect]
     Active Substance: OCRELIZUMAB
     Indication: Multiple sclerosis
     Route: 042
     Dates: start: 20201116, end: 202110

REACTIONS (5)
  - COVID-19 [Recovering/Resolving]
  - Cardiac arrest [Unknown]
  - Brain hypoxia [Fatal]
  - Multiple organ dysfunction syndrome [Fatal]
  - Apallic syndrome [Fatal]

NARRATIVE: CASE EVENT DATE: 20211001
